FAERS Safety Report 7079904-X (Version None)
Quarter: 2010Q4

REPORT INFORMATION
  Report Type: 
  Country: None (occurrence: None)
  Receive Date: 20101102
  Receipt Date: 20101025
  Transmission Date: 20110411
  Serious: Yes (Life-Threatening, Hospitalization, Disabling)
  Sender: FDA-Public Use
  Company Number: FR-PFIZER INC-2010135035

PATIENT
  Age: 87 Year
  Sex: Male

DRUGS (14)
  1. DALACINE [Suspect]
     Indication: ENDOCARDITIS
     Dosage: 1 DF, 2X/DAY
     Route: 042
     Dates: start: 20100218
  2. FUCIDINE [Suspect]
     Indication: ENDOCARDITIS
     Dosage: 1 DF, 3X/DAY
     Route: 042
     Dates: start: 20100218
  3. ZANIDIP [Suspect]
     Indication: HYPERTENSION
     Dosage: 1 DF, 1X/DAY
     Route: 048
     Dates: start: 20100215
  4. CALCIPARINE [Suspect]
     Indication: THROMBOSIS PROPHYLAXIS
     Dosage: 0.2 ML, 2X/DAY
     Route: 058
     Dates: start: 20100213
  5. IMIPENEM AND CILASTATIN [Concomitant]
     Dosage: UNK
     Route: 042
     Dates: start: 20100224, end: 20100227
  6. TARGOCID [Concomitant]
     Indication: ENDOCARDITIS
     Dosage: 600 MG, 1X/DAY
     Route: 042
     Dates: start: 20100202, end: 20100218
  7. GENTAMICIN [Concomitant]
     Indication: ENDOCARDITIS
     Dosage: UNK
     Route: 042
     Dates: start: 20100202, end: 20100204
  8. RIFADIN [Concomitant]
     Indication: ENDOCARDITIS
     Dosage: 1 DF, 2X/DAY
     Route: 042
     Dates: start: 20100204, end: 20100206
  9. CORVASAL [Concomitant]
     Indication: ANGINA PECTORIS
     Dosage: 1 DF, 3X/DAY
     Route: 048
  10. NITROGLYCERIN [Concomitant]
     Indication: ANGINA PECTORIS
     Dosage: 1 DF, 1X/DAY; 44.8MG/14CM2
     Route: 062
     Dates: start: 20100215
  11. LASIX [Concomitant]
     Indication: HYPERTENSION
     Dosage: 1 DF, 1X/DAY
     Route: 048
     Dates: end: 20100212
  12. NEXIUM [Concomitant]
     Indication: DUODENAL ULCER
     Dosage: 1 DF, 1X/DAY
     Route: 048
  13. PERMIXON [Concomitant]
     Dosage: 1 DF, 2X/DAY
     Route: 048
     Dates: end: 20100213
  14. LOVENOX [Concomitant]
     Indication: THROMBOSIS PROPHYLAXIS
     Dosage: 0.4 ML, 1X/DAY
     Route: 058
     Dates: start: 20100202, end: 20100213

REACTIONS (1)
  - RENAL FAILURE ACUTE [None]
